FAERS Safety Report 10272505 (Version 1)
Quarter: 2014Q2

REPORT INFORMATION
  Report Type: Spontaneous
  Country: US (occurrence: None)
  Receive Date: 20140630
  Receipt Date: 20140630
  Transmission Date: 20141212
  Serious: No
  Sender: FDA-Public Use
  Company Number: None

PATIENT
  Age: 20 Year
  Sex: Male
  Weight: 49.9 kg

DRUGS (2)
  1. NUTROGENA BLACKHEAD REMOVING SC [Suspect]
     Indication: ACNE
  2. BENEDRYL [Concomitant]

REACTIONS (2)
  - Eye swelling [None]
  - Throat irritation [None]
